FAERS Safety Report 6741496-X (Version None)
Quarter: 2010Q2

REPORT INFORMATION
  Report Type: 
  Country: None (occurrence: None)
  Receive Date: 20100524
  Receipt Date: 20100521
  Transmission Date: 20101027
  Serious: Yes (Other)
  Sender: FDA-Public Use
  Company Number: BCN-AS-2010-RR-125

PATIENT
  Age: 54 Year
  Sex: Male

DRUGS (14)
  1. FLUOXETINE [Suspect]
     Indication: DEPRESSION
     Dosage: 40 MG 1 IN 1 D, ORAL
     Route: 048
  2. AMILORIDE HYDROCHLORIDE [Concomitant]
  3. CODEINE SUL TAB [Concomitant]
  4. CYCLIZINE, [CYCLIZINE] [Concomitant]
  5. FUROSEMIDE [Concomitant]
  6. GABAPENTIN [Concomitant]
  7. HYOSCINE HBR HYT [Concomitant]
  8. MORPHINE [Concomitant]
  9. OMEPRAZOLE [Concomitant]
  10. ACETAMINOPHEN [Concomitant]
  11. ROPINIROLE [ROPINIROLE]250 MICROG (FOR RESTLESS LEG SYNDROME) [Concomitant]
  12. SPIRANOLACTONE, [SPLRANOLACTONE] [Concomitant]
  13. THIAMINE, [THIAMINE] [Concomitant]
  14. VITAMIN B COMPLEX (NICOTINAMIDE, RIBOFLAVINE, THIAMINE HYDROCHLORIDE), [Concomitant]

REACTIONS (3)
  - ELECTROCARDIOGRAM QT PROLONGED [None]
  - FALL [None]
  - SYNCOPE [None]
